FAERS Safety Report 25332362 (Version 1)
Quarter: 2025Q2

REPORT INFORMATION
  Report Type: Spontaneous
  Country: CH (occurrence: CH)
  Receive Date: 20250519
  Receipt Date: 20250519
  Transmission Date: 20250716
  Serious: Yes (Other)
  Sender: Alora Pharma
  Company Number: CH-AVION PHARMACEUTICALS-2025ALO02217

PATIENT
  Age: 61 Year
  Sex: Male

DRUGS (9)
  1. PONSTEL [Suspect]
     Active Substance: MEFENAMIC ACID
     Indication: Pain
     Dates: start: 1991
  2. ACETAZOLAMIDE [Suspect]
     Active Substance: ACETAZOLAMIDE
     Indication: Intraocular pressure increased
     Dates: start: 199103
  3. ACETAZOLAMIDE [Suspect]
     Active Substance: ACETAZOLAMIDE
     Route: 048
     Dates: start: 19911205
  4. ACETAZOLAMIDE [Suspect]
     Active Substance: ACETAZOLAMIDE
     Route: 048
     Dates: start: 199112
  5. ACETAZOLAMIDE [Suspect]
     Active Substance: ACETAZOLAMIDE
     Dates: start: 1992
  6. DIPIVEFRIN [Suspect]
     Active Substance: DIPIVEFRIN
     Indication: Intraocular pressure increased
     Route: 061
     Dates: start: 1992
  7. DIPIVEFRIN [Suspect]
     Active Substance: DIPIVEFRIN
     Route: 061
     Dates: start: 1992
  8. PILOCARPINE [Suspect]
     Active Substance: PILOCARPINE
     Indication: Intraocular pressure increased
     Route: 047
     Dates: start: 199112
  9. PILOCARPINE [Suspect]
     Active Substance: PILOCARPINE
     Dates: start: 1992

REACTIONS (4)
  - Eye oedema [Recovered/Resolved]
  - Ciliary muscle spasm [Unknown]
  - NSAID exacerbated respiratory disease [Unknown]
  - Chronic sinusitis [Unknown]

NARRATIVE: CASE EVENT DATE: 19910101
